FAERS Safety Report 10781207 (Version 1)
Quarter: 2015Q1

REPORT INFORMATION
  Report Type: Spontaneous
  Country: US (occurrence: US)
  Receive Date: 20150210
  Receipt Date: 20150210
  Transmission Date: 20150721
  Serious: No
  Sender: FDA-Public Use
  Company Number: US-GLAXOSMITHKLINE-A1062673A

PATIENT

DRUGS (2)
  1. NICORETTE [Suspect]
     Active Substance: NICOTINE
     Indication: EX-TOBACCO USER
  2. NICODERM CQ [Suspect]
     Active Substance: NICOTINE
     Indication: EX-TOBACCO USER
     Dates: start: 20140217

REACTIONS (6)
  - Hyperhidrosis [Recovered/Resolved]
  - Expired product administered [Recovered/Resolved]
  - Throat irritation [Recovered/Resolved]
  - Palpitations [Recovered/Resolved]
  - Dry throat [Recovered/Resolved]
  - Oropharyngeal pain [Recovered/Resolved]
